FAERS Safety Report 16105746 (Version 1)
Quarter: 2019Q1

REPORT INFORMATION
  Report Type: Spontaneous
  Country: US (occurrence: US)
  Receive Date: 20190219
  Receipt Date: 20190219
  Transmission Date: 20190418
  Serious: No
  Sender: FDA-Public Use
  Company Number: None

PATIENT
  Age: 44 Year
  Sex: Male
  Weight: 82.55 kg

DRUGS (1)
  1. LORATADINE. [Suspect]
     Active Substance: LORATADINE
     Indication: RHINITIS ALLERGIC
     Route: 048
     Dates: start: 20181107, end: 20181219

REACTIONS (3)
  - Paraesthesia [None]
  - Seizure [None]
  - Burning sensation [None]

NARRATIVE: CASE EVENT DATE: 20181219
